FAERS Safety Report 7950031-X (Version None)
Quarter: 2011Q4

REPORT INFORMATION
  Report Type: 
  Country: None (occurrence: None)
  Receive Date: 20111130
  Receipt Date: 20111118
  Transmission Date: 20120403
  Serious: Yes (Other)
  Sender: FDA-Public Use
  Company Number: US-BAYER-2011-112035

PATIENT
  Sex: Female

DRUGS (1)
  1. MIRENA [Suspect]
     Dosage: 20 MCG/24HR, CONT
     Dates: start: 20111118

REACTIONS (3)
  - MEDICAL DEVICE COMPLICATION [None]
  - PROCEDURAL PAIN [None]
  - POST PROCEDURAL HAEMORRHAGE [None]
